FAERS Safety Report 7671855-2 (Version None)
Quarter: 2011Q3

REPORT INFORMATION
  Report Type: 
  Country: None (occurrence: None)
  Receive Date: 20110809
  Receipt Date: 20110725
  Transmission Date: 20111222
  Serious: Yes (Other)
  Sender: FDA-Public Use
  Company Number: US-ROCHE-795109

PATIENT
  Sex: Male
  Weight: 94.5 kg

DRUGS (7)
  1. PLAVIX [Concomitant]
  2. CAPECITABINE [Suspect]
     Route: 048
     Dates: start: 20110526, end: 20110711
  3. METOPROLOL TARTRATE [Concomitant]
  4. LISINOPRIL [Concomitant]
  5. FAMOTIDINE [Concomitant]
  6. SIMVASTATIN [Concomitant]
  7. ISOSORBIDE DINITRATE [Concomitant]

REACTIONS (3)
  - MUSCULAR WEAKNESS [None]
  - BLINDNESS TRANSIENT [None]
  - DIZZINESS [None]
